FAERS Safety Report 14369800 (Version 1)
Quarter: 2018Q1

REPORT INFORMATION
  Report Type: Spontaneous
  Country: US (occurrence: US)
  Receive Date: 20180110
  Receipt Date: 20180110
  Transmission Date: 20180509
  Serious: No
  Sender: FDA-Public Use
  Company Number: US-DRREDDYS-USA/USA/17/0091626

PATIENT
  Sex: Female
  Weight: 58.51 kg

DRUGS (3)
  1. NICOTINE. [Suspect]
     Active Substance: NICOTINE
     Indication: SMOKING CESSATION THERAPY
     Route: 062
     Dates: start: 201705
  2. GABAPENTIN. [Concomitant]
     Active Substance: GABAPENTIN
     Indication: LIMB DISCOMFORT
     Dosage: ONCE AT NIGHT BEFORE SHE GOES TO BED
     Route: 048
  3. NICOTINE POLACRILEX [Suspect]
     Active Substance: NICOTINE
     Indication: SMOKING CESSATION THERAPY
     Route: 048
     Dates: start: 201705, end: 20170601

REACTIONS (4)
  - Overdose [Unknown]
  - Product quality issue [Unknown]
  - Drug ineffective [Unknown]
  - Treatment noncompliance [Unknown]
